FAERS Safety Report 10072346 (Version 1)
Quarter: 2014Q2

REPORT INFORMATION
  Report Type: Spontaneous
  Country: US (occurrence: US)
  Receive Date: 20140411
  Receipt Date: 20140411
  Transmission Date: 20141212
  Serious: No
  Sender: FDA-Public Use
  Company Number: US-JNJFOC-20140309158

PATIENT
  Age: 55 Year
  Sex: Male

DRUGS (1)
  1. INVEGA SUSTENNA [Suspect]
     Indication: PRODUCT USED FOR UNKNOWN INDICATION
     Dosage: HAD BEEN ON PALIPERIDONE PALMITATE FOR ABOUT 6 MONTHS
     Route: 030
     Dates: start: 2013

REACTIONS (1)
  - Weight increased [Unknown]
